FAERS Safety Report 4551746-6 (Version None)
Quarter: 2005Q1

REPORT INFORMATION
  Report Type: 
  Country: None (occurrence: None)
  Receive Date: 20050110
  Receipt Date: 20041208
  Transmission Date: 20050727
  Serious: Yes (Other)
  Sender: FDA-Public Use
  Company Number: 2004117932

PATIENT
  Age: 62 Year
  Sex: Female

DRUGS (2)
  1. LATANOPROST [Suspect]
     Indication: GLAUCOMA
     Dosage: OPHTHALMIC
     Route: 047
     Dates: start: 20030101
  2. PILOCARPINE HYDROCHLORIDE [Suspect]
     Indication: GLAUCOMA
     Dosage: OPHTHALMIC
     Route: 047
     Dates: start: 19980101

REACTIONS (4)
  - EYE DISORDER [None]
  - PIGMENTATION DISORDER [None]
  - PUPILLARY DISORDER [None]
  - VISUAL ACUITY REDUCED [None]
